FAERS Safety Report 5224887-8 (Version None)
Quarter: 2007Q1

REPORT INFORMATION
  Report Type: 
  Country: None (occurrence: None)
  Receive Date: 20070126
  Receipt Date: 20070117
  Transmission Date: 20070707
  Serious: Yes (Life-Threatening)
  Sender: FDA-Public Use
  Company Number: OMPQ-NO-0701S-0037

PATIENT
  Age: 81 Year
  Sex: Female

DRUGS (1)
  1. OMNIPAQUE 140 [Suspect]
     Indication: THYROID CANCER
     Dosage: 80 MG, SINGLE DOSE, I.V.
     Route: 042
     Dates: start: 20070109, end: 20070109

REACTIONS (1)
  - RESPIRATORY FAILURE [None]
